FAERS Safety Report 6985948-6 (Version None)
Quarter: 2010Q3

REPORT INFORMATION
  Report Type: 
  Country: None (occurrence: None)
  Receive Date: 20100827
  Receipt Date: 20091106
  Transmission Date: 20110219
  Serious: Yes (Hospitalization)
  Sender: FDA-Public Use
  Company Number: AMAG200900044

PATIENT
  Age: 75 Year
  Sex: Female
  Weight: 91.2 kg

DRUGS (3)
  1. FERAHEME [Suspect]
     Indication: IRON DEFICIENCY ANAEMIA
     Dosage: 510 MG, SINGLE, INTRAVENOUS
     Route: 042
     Dates: start: 20091029, end: 20091029
  2. ASPIRIN [Concomitant]
  3. PLAVIX [Concomitant]

REACTIONS (2)
  - ECCHYMOSIS [None]
  - HEADACHE [None]
